FAERS Safety Report 21403341 (Version 1)
Quarter: 2022Q4

REPORT INFORMATION
  Report Type: Spontaneous
  Country: US (occurrence: US)
  Receive Date: 20221003
  Receipt Date: 20221003
  Transmission Date: 20230112
  Serious: No
  Sender: FDA-Public Use
  Company Number: US-BRISTOL-MYERS SQUIBB COMPANY-2022-114999

PATIENT
  Age: 70 Year
  Sex: Female
  Weight: 83.01 kg

DRUGS (1)
  1. REVLIMID [Suspect]
     Active Substance: LENALIDOMIDE
     Indication: Mantle cell lymphoma
     Dosage: 21 DAYS ON AND 7 DAYS OFF
     Route: 048

REACTIONS (1)
  - Decreased appetite [Unknown]
